FAERS Safety Report 8826134 (Version 1)
Quarter: 2012Q4

REPORT INFORMATION
  Report Type: 
  Country: US (occurrence: US)
  Receive Date: 20121005
  Receipt Date: 20121005
  Transmission Date: 20130627
  Serious: Yes (Hospitalization)
  Sender: FDA-Public Use
  Company Number: US-BAYER-2012-102707

PATIENT
  Age: 30 Year
  Sex: Female

DRUGS (46)
  1. YAZ [Suspect]
  2. YASMIN [Suspect]
     Indication: CONTRACEPTION
  3. OCELLA [Suspect]
  4. DAPSONE [Concomitant]
     Dosage: 5 %, UNK
     Route: 061
     Dates: start: 20110301
  5. FINACEA [Concomitant]
     Dosage: 15 % UNK
     Route: 061
     Dates: start: 20110301
  6. DIAZEPAM [Concomitant]
     Dosage: 5 mg, UNK
     Route: 048
     Dates: start: 20110301
  7. FLAGYL [Concomitant]
     Indication: VAGINAL INFECTION
     Dosage: 500 mg, BID, 7 DAYS
     Dates: start: 20110309
  8. LEVOTHYROXINE [Concomitant]
     Indication: HYPOTHYROIDISM
     Dosage: 50 ?g daily
     Route: 048
     Dates: start: 20110312
  9. MAXALT [Concomitant]
     Dosage: 10 mg, UNK
     Route: 048
     Dates: start: 20110311
  10. MAXALT [Concomitant]
     Dosage: 10 mg, UNK
     Route: 048
     Dates: start: 20110322
  11. FENOFIBRATE [Concomitant]
     Dosage: 160 mg, UNK
     Route: 048
     Dates: start: 20110322
  12. ATENOLOL [Concomitant]
     Dosage: 25 mg, UNK
     Route: 048
     Dates: start: 20110328
  13. PROMETHAZINE [Concomitant]
     Dosage: 25 mg, UNK
     Route: 048
     Dates: start: 20110331
  14. HYDROCODONE W/ACETAMINOPHEN [Concomitant]
     Dosage: 7.5 [as written]1 to 2, tablet q 4 to 6 h
     Route: 048
     Dates: start: 20110331
  15. CLONAZEPAM [Concomitant]
     Indication: ANXIETY
     Dosage: 3 mg, daily
     Route: 048
     Dates: start: 20110414
  16. CLONAZEPAM [Concomitant]
     Indication: PANIC ATTACK
  17. RELPAX [Concomitant]
     Indication: MIGRAINE
     Dosage: 40 mg, PRN
     Route: 048
     Dates: start: 20110423
  18. PHENTERMINE [Concomitant]
     Dosage: 37.5 mg, UNK
     Route: 048
     Dates: start: 20110423
  19. FLUCONAZOLE [Concomitant]
     Dosage: 150 mg/24hr, UNK
     Route: 048
     Dates: start: 20110426
  20. OMEPRAZOLE [Concomitant]
     Dosage: 20 mg, UNK
     Route: 048
     Dates: start: 20110303, end: 20110427
  21. RANITIDINE [Concomitant]
     Dosage: 300 mg, UNK
     Route: 048
     Dates: start: 20110428
  22. GABAPENTIN [Concomitant]
     Dosage: 600 mg, BID
     Route: 048
     Dates: start: 20110428
  23. CYCLOBENZAPRINE [Concomitant]
     Indication: BACK PAIN
     Dosage: 10 mg, TID
     Route: 048
     Dates: start: 20110429
  24. AZITHROMYCIN [Concomitant]
     Dosage: 250 mg, UNK
     Route: 048
     Dates: start: 20110515
  25. BENZONATATE [Concomitant]
     Dosage: 100 mg, UNK
     Route: 048
     Dates: start: 20110515
  26. ALBUTEROL SULFATE [Concomitant]
     Dosage: 90 ?g, 1 puff BID
     Route: 045
     Dates: start: 20110515
  27. NABUMETONE [Concomitant]
     Dosage: 500 mg, UNK
     Route: 048
     Dates: start: 20110519
  28. GUAIFENESIN/CODEINE [Concomitant]
     Dosage: UNK
     Route: 048
     Dates: start: 20110519
  29. LIDOCAINE VISCOUS [Concomitant]
     Dosage: UNK
     Dates: start: 20110519
  30. PANTOPRAZOLE [Concomitant]
     Dosage: 40 mg, UNK
     Route: 048
     Dates: start: 20110519
  31. PREDNISONE [Concomitant]
     Dosage: 20 mg, UNK
     Route: 048
     Dates: start: 20110519
  32. SEROQUEL [Concomitant]
     Indication: SLEEP DISORDER THERAPY
     Dosage: 350 mg, HS
     Route: 048
     Dates: start: 20110321, end: 20110519
  33. FOLIC ACID [Concomitant]
     Dosage: 1 mg, DAILY
     Route: 048
     Dates: start: 20110531
  34. IBUPROFEN [Concomitant]
     Dosage: 800 mg, UNK
     Route: 048
     Dates: start: 20110604
  35. QVAR [Concomitant]
     Dosage: 40 ?g, BID
     Route: 045
     Dates: start: 20110607
  36. ZOFRAN [Concomitant]
     Dosage: 4 mg, q 6 to 8 h
     Route: 048
     Dates: start: 20110607
  37. PRAVASTATIN [Concomitant]
     Dosage: 20 mg, UNK
     Route: 048
     Dates: start: 20110607
  38. TOPAMAX [Concomitant]
     Dosage: 50 mg, BID
     Route: 048
     Dates: start: 20110420
  39. FLEXERIL [Concomitant]
  40. KLONOPIN [Concomitant]
  41. ALBUTEROL [Concomitant]
  42. TRICOR [Concomitant]
  43. NEURONTIN [Concomitant]
  44. PRAVACHOL [Concomitant]
  45. MORPHINE SULFATE [Concomitant]
  46. OXYCODONE [Concomitant]

REACTIONS (2)
  - Deep vein thrombosis [None]
  - Pulmonary embolism [Recovered/Resolved]
